FAERS Safety Report 5628762-6 (Version None)
Quarter: 2008Q1

REPORT INFORMATION
  Report Type: 
  Country: None (occurrence: None)
  Receive Date: 20080215
  Receipt Date: 20080204
  Transmission Date: 20080703
  Serious: Yes (Other)
  Sender: FDA-Public Use
  Company Number: GB-PFIZER INC-2008012540

PATIENT
  Age: 52 Year
  Sex: Male

DRUGS (5)
  1. LYRICA [Suspect]
     Route: 048
  2. QUETIAPINE FUMARATE [Concomitant]
  3. CABERGOLINE [Concomitant]
  4. AMANTADINE HCL [Concomitant]
  5. LACTULOSE [Concomitant]

REACTIONS (2)
  - DYSPHAGIA [None]
  - PARKINSON'S DISEASE [None]
